FAERS Safety Report 22521463 (Version 1)
Quarter: 2023Q2

REPORT INFORMATION
  Report Type: Spontaneous
  Country: FR (occurrence: FR)
  Receive Date: 20230605
  Receipt Date: 20230605
  Transmission Date: 20230722
  Serious: Yes (Hospitalization)
  Sender: FDA-Public Use
  Company Number: None

PATIENT
  Age: 15 Year
  Sex: Female
  Weight: 53 kg

DRUGS (1)
  1. ACETAMINOPHEN [Suspect]
     Active Substance: ACETAMINOPHEN
     Indication: Abdominal pain
     Dosage: 8 GRAM 1 TOTAL
     Route: 048
     Dates: start: 20230508, end: 20230508

REACTIONS (3)
  - Vomiting [Recovered/Resolved]
  - Hepatic cytolysis [Recovering/Resolving]
  - Accidental overdose [Not Recovered/Not Resolved]

NARRATIVE: CASE EVENT DATE: 20230508
